FAERS Safety Report 7365493-9 (Version None)
Quarter: 2011Q1

REPORT INFORMATION
  Report Type: 
  Country: None (occurrence: None)
  Receive Date: 20110322
  Receipt Date: 20100909
  Transmission Date: 20110831
  Serious: Yes (Hospitalization)
  Sender: FDA-Public Use
  Company Number: US-BAYER-201014006NA

PATIENT
  Sex: Female
  Weight: 111.11 kg

DRUGS (5)
  1. YASMIN [Suspect]
     Indication: ACNE
     Route: 048
     Dates: start: 20020701
  2. VICODIN [Concomitant]
  3. YASMIN [Suspect]
     Indication: PREMENSTRUAL SYNDROME
  4. MAALOX [Concomitant]
  5. DICYCLOMINE [Concomitant]

REACTIONS (3)
  - CHOLELITHIASIS [None]
  - CHOLECYSTITIS CHRONIC [None]
  - CHOLECYSTECTOMY [None]
